FAERS Safety Report 22066222 (Version 1)
Quarter: 2023Q1

REPORT INFORMATION
  Report Type: Spontaneous
  Country: CA (occurrence: None)
  Receive Date: 20230306
  Receipt Date: 20230306
  Transmission Date: 20230418
  Serious: Yes (Hospitalization, Disabling)
  Sender: FDA-Public Use
  Company Number: None

PATIENT
  Age: 57 Year
  Sex: Male
  Weight: 85.5 kg

DRUGS (15)
  1. ATORVASTATIN [Suspect]
     Active Substance: ATORVASTATIN
     Indication: Blood cholesterol increased
     Dosage: OTHER QUANTITY : 1 TABLET(S);?FREQUENCY : AT BEDTIME;?
     Route: 048
     Dates: end: 20230106
  2. VENLAFAXINE [Concomitant]
     Active Substance: VENLAFAXINE HYDROCHLORIDE
  3. ALLOPURINOL [Concomitant]
     Active Substance: ALLOPURINOL
  4. HYDROCHLOROTHIAZIDE [Concomitant]
  5. BUPROPION [Concomitant]
  6. METFORMIN [Concomitant]
  7. TAMSULOSIN [Concomitant]
  8. PERINDOPRIL [Concomitant]
  9. BABY ASPIRIN [Concomitant]
  10. OZEMPIC [Concomitant]
  11. RISEDRONATE SODIUM [Concomitant]
     Active Substance: RISEDRONATE SODIUM
  12. PREDNISONE [Concomitant]
  13. VITAMIN B12 [Concomitant]
     Active Substance: CYANOCOBALAMIN
  14. VITAMIN D3 [Concomitant]
     Active Substance: CHOLECALCIFEROL
  15. TYLENOL ARTHRITIS PAIN [Concomitant]
     Active Substance: ACETAMINOPHEN

REACTIONS (16)
  - Fall [None]
  - Head injury [None]
  - Skin laceration [None]
  - Eyelid injury [None]
  - Scratch [None]
  - Concussion [None]
  - Tinnitus [None]
  - Headache [None]
  - Photophobia [None]
  - Hyperacusis [None]
  - Nausea [None]
  - Reading disorder [None]
  - Blood creatine phosphokinase increased [None]
  - Antibody test positive [None]
  - Immune-mediated myositis [None]
  - Joint injury [None]

NARRATIVE: CASE EVENT DATE: 20230203
